FAERS Safety Report 24685648 (Version 1)
Quarter: 2024Q4

REPORT INFORMATION
  Report Type: Spontaneous
  Country: US (occurrence: None)
  Receive Date: 20241127
  Receipt Date: 20241127
  Transmission Date: 20250115
  Serious: Yes (Hospitalization)
  Sender: Public
  Company Number: None

PATIENT
  Sex: Female

DRUGS (3)
  1. WINREVAIR [Suspect]
     Active Substance: SOTATERCEPT-CSRK
     Dosage: OTHER FREQUENCY : EVERY3WEEKS;?
     Route: 058
     Dates: start: 202406
  2. SILDENAFIL CITRATE [Concomitant]
  3. C-TREPROSTINIL 0.2MG/ML [Concomitant]

REACTIONS (1)
  - Pneumonia [None]
